FAERS Safety Report 8313630-1 (Version None)
Quarter: 2012Q2

REPORT INFORMATION
  Report Type: 
  Country: None (occurrence: None)
  Receive Date: 20120426
  Receipt Date: 20120419
  Transmission Date: 20120825
  Serious: Yes (Hospitalization)
  Sender: FDA-Public Use
  Company Number: DE-ASTELLAS-2012US003605

PATIENT
  Sex: Male

DRUGS (5)
  1. MORPHINE [Concomitant]
     Indication: PAIN
     Dosage: 100 MG, UID/QD
     Route: 048
  2. HYDROCHLOROTHIAZIDE [Concomitant]
     Indication: HYPERTENSION
     Dosage: 25 MG, UID/QD
     Route: 048
  3. TARCEVA [Suspect]
     Indication: LUNG NEOPLASM MALIGNANT
     Dosage: 150 MG, UID/QD
     Route: 048
  4. PANTOZAL [Concomitant]
     Indication: GASTRIC DISORDER
     Dosage: 40 MG, UID/QD
     Route: 048
  5. TARCEVA [Suspect]
     Dosage: UNK
     Route: 048

REACTIONS (2)
  - CORNEAL EROSION [None]
  - KERATORHEXIS [None]
